FAERS Safety Report 7799061-1 (Version None)
Quarter: 2011Q4

REPORT INFORMATION
  Report Type: 
  Country: None (occurrence: None)
  Receive Date: 20111004
  Receipt Date: 20111004
  Transmission Date: 20120403
  Serious: Yes (Other)
  Sender: FDA-Public Use
  Company Number: None

PATIENT
  Age: 70 Year
  Sex: Female
  Weight: 33.4755 kg

DRUGS (1)
  1. LIDOCAINE 0.5% W/ EPINEPHRINE 1:200,000 [Suspect]
     Indication: CATARACT
     Dosage: 6ML X1

REACTIONS (1)
  - DRUG INEFFECTIVE [None]
